FAERS Safety Report 17754424 (Version 1)
Quarter: 2020Q2

REPORT INFORMATION
  Report Type: Spontaneous
  Country: PE (occurrence: PE)
  Receive Date: 20200506
  Receipt Date: 20200506
  Transmission Date: 20200714
  Serious: Yes (Death, Other)
  Sender: FDA-Public Use
  Company Number: PE-009507513-2005PER000571

PATIENT
  Age: 45 Year
  Sex: Female

DRUGS (1)
  1. KEYTRUDA [Suspect]
     Active Substance: PEMBROLIZUMAB
     Indication: ADENOSQUAMOUS CARCINOMA OF THE CERVIX
     Dosage: 200 MILLIGRAM, Q3W

REACTIONS (1)
  - Death [Fatal]
